FAERS Safety Report 12643778 (Version 1)
Quarter: 2016Q3

REPORT INFORMATION
  Report Type: Spontaneous
  Country: FR (occurrence: FR)
  Receive Date: 20160811
  Receipt Date: 20160811
  Transmission Date: 20161109
  Serious: Yes (Hospitalization)
  Sender: FDA-Public Use
  Company Number: FR-BAYER-2016-151398

PATIENT
  Age: 48 Year
  Sex: Female

DRUGS (2)
  1. ASPRO [Suspect]
     Active Substance: ASPIRIN\SODIUM BICARBONATE
     Dosage: 500 MG, UNK
     Dates: start: 20160622, end: 20160622
  2. RULID [Suspect]
     Active Substance: ROXITHROMYCIN
     Dosage: UNK
     Route: 048
     Dates: start: 20160622, end: 20160622

REACTIONS (1)
  - Pancreatitis acute [Recovered/Resolved]

NARRATIVE: CASE EVENT DATE: 20160623
